FAERS Safety Report 9124050 (Version 1)
Quarter: 2013Q1

REPORT INFORMATION
  Report Type: Spontaneous
  Country: US (occurrence: US)
  Receive Date: 20130116
  Receipt Date: 20130116
  Transmission Date: 20140127
  Serious: Yes (Other)
  Sender: FDA-Public Use
  Company Number: US-PFIZER INC-2013016280

PATIENT
  Age: 74 Year
  Sex: Female
  Weight: 95.24 kg

DRUGS (2)
  1. CELEBREX [Suspect]
     Indication: RHEUMATOID ARTHRITIS
     Dosage: 200 MG, DAILY
     Dates: start: 2007, end: 20121231
  2. LIPITOR [Suspect]
     Indication: BLADDER DISORDER
     Dosage: UNK

REACTIONS (3)
  - Fall [Unknown]
  - Spinal fracture [Unknown]
  - Drug ineffective [Unknown]
